FAERS Safety Report 4777717-2 (Version None)
Quarter: 2005Q3

REPORT INFORMATION
  Report Type: 
  Country: None (occurrence: None)
  Receive Date: 20050923
  Receipt Date: 20050913
  Transmission Date: 20060218
  Serious: Yes (Hospitalization)
  Sender: FDA-Public Use
  Company Number: CH-MERCK-0509CHE00038

PATIENT
  Age: 61 Year
  Sex: Female

DRUGS (11)
  1. VIOXX [Suspect]
     Route: 048
  2. HYDROCHLOROTHIAZIDE AND TELMISARTAN [Concomitant]
     Route: 048
  3. ASPIRIN [Concomitant]
     Route: 048
  4. LEVOTHYROXINE SODIUM [Concomitant]
     Route: 048
  5. FUROSEMIDE [Concomitant]
     Route: 048
  6. ZOCOR [Suspect]
     Route: 048
  7. PANTOPRAZOLE SODIUM [Concomitant]
     Route: 048
  8. FLUOXETINE [Concomitant]
     Route: 048
  9. ESTROGENS, CONJUGATED [Concomitant]
     Route: 048
  10. ACETAMINOPHEN [Concomitant]
     Route: 048
  11. MAGNESIUM (UNSPECIFIED) [Concomitant]
     Route: 048

REACTIONS (3)
  - COLITIS COLLAGENOUS [None]
  - DIARRHOEA [None]
  - YERSINIA INFECTION [None]
